FAERS Safety Report 10213478 (Version 1)
Quarter: 2014Q2

REPORT INFORMATION
  Report Type: Spontaneous
  Country: US (occurrence: None)
  Receive Date: 20140530
  Receipt Date: 20140530
  Transmission Date: 20141212
  Serious: Yes (Other)
  Sender: FDA-Public Use
  Company Number: FK201402009

PATIENT
  Sex: 0

DRUGS (2)
  1. NEOSTIGMINE METHYLSULFATE [Suspect]
     Indication: PRODUCT USED FOR UNKNOWN INDICATION
  2. GLYCOPYRROLATE [Suspect]
     Indication: PRODUCT USED FOR UNKNOWN INDICATION

REACTIONS (2)
  - Post procedural complication [None]
  - Cardiac disorder [None]
